FAERS Safety Report 19539146 (Version 1)
Quarter: 2021Q3

REPORT INFORMATION
  Report Type: Spontaneous
  Country: US (occurrence: US)
  Receive Date: 20210714
  Receipt Date: 20210714
  Transmission Date: 20211014
  Serious: No
  Sender: FDA-Public Use
  Company Number: None

PATIENT
  Sex: Male

DRUGS (22)
  1. HYDROXYZINE HYDROCHLORIDE/LUTEIN [Concomitant]
  2. AMOXICILLIN/ BELSOMRA [Concomitant]
  3. FUROSEMIDE/HYDRALAZINE HCL [Concomitant]
  4. MONTELUKAST SODIUM/ OMEGA 3 [Concomitant]
  5. ATENOLOL. [Concomitant]
     Active Substance: ATENOLOL
  6. HAIR/SKIN/NAILS [Concomitant]
  7. AMBRISENTAN [Suspect]
     Active Substance: AMBRISENTAN
     Indication: PULMONARY ARTERIAL HYPERTENSION
     Route: 048
  8. ACETAMINOPHEN/ XARELTO [Concomitant]
  9. OXYCODONE/ACETAMINOPHEN/ ASPIRIN [Concomitant]
  10. SAW PALMETTO [Concomitant]
     Active Substance: HERBALS\SAW PALMETTO
  11. FISH OIL/CLONAZEPAM ODT [Concomitant]
  12. CENTRUM SILVER 50+MEN/CORTIZONE?10 [Concomitant]
  13. ZINC. [Concomitant]
     Active Substance: ZINC
  14. DOCUSATE SODIUM. [Concomitant]
     Active Substance: DOCUSATE SODIUM
  15. VOLTAREN/ ISOSORBIDE DINITRATE [Concomitant]
  16. MIRALAX/OXCARBAZEPINE [Concomitant]
  17. HYDROCODONE BITARTRATE/AC [Concomitant]
  18. AMITRIPTYLINE HYDROCHLORI [Concomitant]
  19. OMEPRAZOLE/ELIQUIS [Concomitant]
  20. ARTHRITIS PAIN RELIEF/ MAGNESIUM ELEMENTAL [Concomitant]
  21. GABAPENTIN. [Concomitant]
     Active Substance: GABAPENTIN
  22. VALACYCLOVIR HCL [Concomitant]
     Active Substance: VALACYCLOVIR HYDROCHLORIDE

REACTIONS (1)
  - Brain injury [None]
